FAERS Safety Report 14726284 (Version 1)
Quarter: 2018Q2

REPORT INFORMATION
  Report Type: Spontaneous
  Country: US (occurrence: US)
  Receive Date: 20180406
  Receipt Date: 20180406
  Transmission Date: 20180711
  Serious: No
  Sender: FDA-Public Use
  Company Number: US-009507513-1803USA008639

PATIENT
  Age: 16 Year
  Sex: Male
  Weight: 60 kg

DRUGS (3)
  1. INVANZ [Suspect]
     Active Substance: ERTAPENEM SODIUM
     Indication: APPENDICITIS PERFORATED
     Dosage: 1000 MG EVERY 24 HOURS
     Route: 042
  2. CIPROFLOXACIN. [Concomitant]
     Active Substance: CIPROFLOXACIN
     Indication: APPENDICITIS PERFORATED
     Dosage: 400 MG EVERY 12 HOURS
  3. METRONIDAZOLE. [Concomitant]
     Active Substance: METRONIDAZOLE
     Indication: APPENDICITIS PERFORATED
     Dosage: 1500 MG EVERY 24 HOURS

REACTIONS (1)
  - Drug ineffective [Unknown]
